FAERS Safety Report 13697456 (Version 1)
Quarter: 2017Q2

REPORT INFORMATION
  Report Type: Spontaneous
  Country: US (occurrence: US)
  Receive Date: 20170628
  Receipt Date: 20170628
  Transmission Date: 20170830
  Serious: No
  Sender: FDA-Public Use
  Company Number: None

PATIENT
  Age: 69 Year
  Sex: Female
  Weight: 73.94 kg

DRUGS (2)
  1. AMINOPHYLLINE. [Suspect]
     Active Substance: AMINOPHYLLINE
  2. LEXISCAN [Suspect]
     Active Substance: REGADENOSON

REACTIONS (7)
  - Toothache [None]
  - Dysstasia [None]
  - Speech disorder [None]
  - Tremor [None]
  - Dyspnoea [None]
  - Eye pain [None]
  - Headache [None]

NARRATIVE: CASE EVENT DATE: 20170620
